FAERS Safety Report 25473681 (Version 1)
Quarter: 2025Q2

REPORT INFORMATION
  Report Type: Spontaneous
  Country: CN (occurrence: CN)
  Receive Date: 20250624
  Receipt Date: 20250624
  Transmission Date: 20250716
  Serious: Yes (Other)
  Sender: PFIZER
  Company Number: CN-PFIZER INC-PV202500074455

PATIENT
  Age: 75 Year
  Sex: Male
  Weight: 70 kg

DRUGS (4)
  1. LINEZOLID [Suspect]
     Active Substance: LINEZOLID
     Indication: Intervertebral disc protrusion
     Dosage: 0.6 G, 2X/DAY
     Route: 041
     Dates: start: 20250523, end: 20250528
  2. LINEZOLID [Suspect]
     Active Substance: LINEZOLID
     Indication: Radiculopathy
  3. LINEZOLID [Suspect]
     Active Substance: LINEZOLID
     Indication: Intervertebral disc protrusion
     Dosage: 0.3 G, 2X/DAY
     Route: 048
     Dates: start: 20250528, end: 20250609
  4. LINEZOLID [Suspect]
     Active Substance: LINEZOLID
     Indication: Radiculopathy

REACTIONS (3)
  - Blood disorder [Recovering/Resolving]
  - Anaemia [Recovering/Resolving]
  - Off label use [Unknown]

NARRATIVE: CASE EVENT DATE: 20250523
